FAERS Safety Report 5035805-X (Version None)
Quarter: 2006Q2

REPORT INFORMATION
  Report Type: 
  Country: None (occurrence: None)
  Receive Date: 20060622
  Receipt Date: 20060616
  Transmission Date: 20061013
  Serious: Yes (Other)
  Sender: FDA-Public Use
  Company Number: T200600645

PATIENT
  Sex: 0

DRUGS (1)
  1. OPTIRAY 160 [Suspect]
     Dosage: 50 ML, INTRAVENOUS
     Route: 042
     Dates: start: 20060602, end: 20060602

REACTIONS (4)
  - AIR EMBOLISM [None]
  - MALAISE [None]
  - PHARMACEUTICAL PRODUCT COMPLAINT [None]
  - WRONG TECHNIQUE IN DRUG USAGE PROCESS [None]
